FAERS Safety Report 5958245-5 (Version None)
Quarter: 2008Q4

REPORT INFORMATION
  Report Type: 
  Country: None (occurrence: None)
  Receive Date: 20081119
  Receipt Date: 20081106
  Transmission Date: 20090506
  Serious: Yes (Hospitalization)
  Sender: FDA-Public Use
  Company Number: US-BIOGENIDEC-2008BI030232

PATIENT
  Age: 40 Year
  Sex: Female
  Weight: 108 kg

DRUGS (8)
  1. TYSABRI [Suspect]
     Indication: MULTIPLE SCLEROSIS
     Route: 042
     Dates: start: 20080206, end: 20080804
  2. IMMUCOTHEL (KLH) [Concomitant]
     Dates: start: 20080819
  3. TETANUS DIPHTHERIA [Concomitant]
     Dates: start: 20080804
  4. COPAXONE [Concomitant]
     Indication: MULTIPLE SCLEROSIS
     Route: 058
  5. NOVANTRONE [Concomitant]
     Indication: HERPES ZOSTER DISSEMINATED
     Dates: start: 20080926
  6. ADVIL PM [Concomitant]
     Indication: INSOMNIA
     Route: 048
     Dates: start: 20060101
  7. IBUPROFEN TABLETS [Concomitant]
     Indication: HEADACHE
     Route: 048
     Dates: start: 20060101
  8. ROBITUSSIN [Concomitant]
     Indication: COUGH
     Route: 048
     Dates: start: 20080405

REACTIONS (1)
  - HERPES ZOSTER DISSEMINATED [None]
